FAERS Safety Report 24978843 (Version 2)
Quarter: 2025Q1

REPORT INFORMATION
  Report Type: Spontaneous
  Country: US (occurrence: US)
  Receive Date: 20250218
  Receipt Date: 20250227
  Transmission Date: 20250408
  Serious: Yes (Death, Hospitalization, Other)
  Sender: NOVARTIS
  Company Number: US-002147023-NVSC2025US025686

PATIENT
  Age: 74 Year
  Sex: Male

DRUGS (1)
  1. PROMACTA [Suspect]
     Active Substance: ELTROMBOPAG OLAMINE
     Indication: Immune thrombocytopenia
     Dosage: 25 MG, QD (VIA FEEDING TUBE)
     Route: 065
     Dates: start: 202408

REACTIONS (3)
  - Acute respiratory failure [Fatal]
  - Sepsis [Fatal]
  - Hepatic vascular thrombosis [Not Recovered/Not Resolved]

NARRATIVE: CASE EVENT DATE: 20250207
